FAERS Safety Report 6246341-7 (Version None)
Quarter: 2009Q2

REPORT INFORMATION
  Report Type: 
  Country: None (occurrence: None)
  Receive Date: 20090624
  Receipt Date: 20090624
  Transmission Date: 20091009
  Serious: No
  Sender: FDA-Public Use
  Company Number: None

PATIENT
  Age: 69 Year
  Sex: Female
  Weight: 61.2356 kg

DRUGS (1)
  1. CALC ACETATE 667MG ROX [Suspect]
     Indication: BLOOD PHOSPHORUS INCREASED
     Dosage: 1 3 WITH MEALS PO
     Route: 048
     Dates: start: 20090527, end: 20090606

REACTIONS (4)
  - CRYING [None]
  - DECREASED APPETITE [None]
  - DEPRESSION [None]
  - SOMNOLENCE [None]
